FAERS Safety Report 6047704-5 (Version None)
Quarter: 2009Q1

REPORT INFORMATION
  Report Type: 
  Country: None (occurrence: None)
  Receive Date: 20090123
  Receipt Date: 20090113
  Transmission Date: 20090719
  Serious: Yes (Hospitalization)
  Sender: FDA-Public Use
  Company Number: US-JNJFOC-20090102832

PATIENT
  Sex: Female
  Weight: 74.39 kg

DRUGS (7)
  1. LEVAQUIN [Suspect]
     Indication: BRONCHITIS
     Route: 048
  2. PHENERGAN EXPECTORANT W/ CODEINE [Concomitant]
     Indication: BRONCHITIS
     Route: 048
  3. ARICEPT [Concomitant]
     Indication: MEMORY IMPAIRMENT
     Route: 065
  4. PAXIL [Concomitant]
     Indication: DEPRESSION
     Route: 065
  5. DETROL [Concomitant]
     Indication: INCONTINENCE
     Route: 065
  6. LIPITOR [Concomitant]
     Indication: BLOOD CHOLESTEROL
     Route: 065
  7. TOPROL-XL [Concomitant]
     Indication: HYPERTENSION
     Route: 065

REACTIONS (6)
  - ASPIRATION [None]
  - DYSARTHRIA [None]
  - FACIAL PALSY [None]
  - HALLUCINATION [None]
  - HYPERSENSITIVITY [None]
  - TREMOR [None]
